FAERS Safety Report 4605764-X (Version None)
Quarter: 2005Q1

REPORT INFORMATION
  Report Type: 
  Country: None (occurrence: None)
  Receive Date: 20050115
  Receipt Date: 20040102
  Transmission Date: 20050727
  Serious: Yes (Hospitalization)
  Sender: FDA-Public Use
  Company Number: A03200400023

PATIENT
  Age: 70 Year
  Sex: Female
  Weight: 62 kg

DRUGS (4)
  1. AMBIEN [Suspect]
     Indication: INSOMNIA
     Dosage: 10 TO 20 MG QHS - ORAL
     Route: 048
     Dates: start: 20030818
  2. OXALIPLATIN [Concomitant]
  3. FLUOROURACIL [Concomitant]
  4. LEUCOVORIN [Concomitant]

REACTIONS (2)
  - FALL [None]
  - HIP FRACTURE [None]
